FAERS Safety Report 13060281 (Version 2)
Quarter: 2017Q4

REPORT INFORMATION
  Report Type: Spontaneous
  Country: MX (occurrence: MX)
  Receive Date: 20161223
  Receipt Date: 20171107
  Transmission Date: 20180320
  Serious: Yes (Other)
  Sender: FDA-Public Use
  Company Number: MX-BAUSCH-BL-2016-031934

PATIENT
  Age: 39 Year
  Sex: Male

DRUGS (4)
  1. ZALCITABINE [Concomitant]
     Active Substance: ZALCITABINE
     Indication: PRODUCT USED FOR UNKNOWN INDICATION
  2. GANCICLOVIR. [Suspect]
     Active Substance: GANCICLOVIR
     Indication: CYTOMEGALOVIRUS CHORIORETINITIS
     Route: 065
     Dates: start: 199604
  3. ACYCLOVIR. [Concomitant]
     Active Substance: ACYCLOVIR
     Indication: HERPES ZOSTER
  4. AZIDOTHYMIDINE [Concomitant]
     Active Substance: ZIDOVUDINE
     Indication: PRODUCT USED FOR UNKNOWN INDICATION
     Dates: start: 199506

REACTIONS (3)
  - Lymphoedema [Unknown]
  - Condition aggravated [Unknown]
  - Pain [Unknown]
